FAERS Safety Report 11090356 (Version 4)
Quarter: 2015Q2

REPORT INFORMATION
  Report Type: Report from Study
  Country: US (occurrence: US)
  Receive Date: 20150505
  Receipt Date: 20150623
  Transmission Date: 20150821
  Serious: Yes (Hospitalization)
  Sender: FDA-Public Use
  Company Number: US-ABBVIE-15K-163-1383860-00

PATIENT
  Age: 42 Year
  Sex: Female
  Weight: 61.29 kg

DRUGS (6)
  1. HUMIRA [Suspect]
     Active Substance: ADALIMUMAB
     Indication: CROHN^S DISEASE
     Route: 065
     Dates: start: 20140804, end: 201503
  2. FLAGYL [Concomitant]
     Active Substance: METRONIDAZOLE\METRONIDAZOLE HYDROCHLORIDE
     Indication: PRODUCT USED FOR UNKNOWN INDICATION
     Route: 042
  3. TRAMADOL [Concomitant]
     Active Substance: TRAMADOL
     Indication: PRODUCT USED FOR UNKNOWN INDICATION
  4. METHOTREXATE [Concomitant]
     Active Substance: METHOTREXATE
     Indication: PRODUCT USED FOR UNKNOWN INDICATION
  5. HUMIRA [Suspect]
     Active Substance: ADALIMUMAB
     Indication: OFF LABEL USE
     Route: 065
     Dates: start: 20150607
  6. ZOFRAN [Concomitant]
     Active Substance: ONDANSETRON HYDROCHLORIDE
     Indication: PRODUCT USED FOR UNKNOWN INDICATION

REACTIONS (18)
  - Pulmonary mass [Recovering/Resolving]
  - Pain [Unknown]
  - Mucous stools [Recovered/Resolved]
  - Insomnia [Recovered/Resolved]
  - Frequent bowel movements [Recovered/Resolved]
  - Haematochezia [Recovered/Resolved]
  - Atelectasis [Unknown]
  - Pyrexia [Unknown]
  - Condition aggravated [Recovering/Resolving]
  - Panic attack [Recovering/Resolving]
  - Malaise [Unknown]
  - Vomiting [Unknown]
  - Lung consolidation [Recovering/Resolving]
  - Pneumonitis [Recovering/Resolving]
  - Crohn^s disease [Not Recovered/Not Resolved]
  - Nausea [Recovered/Resolved]
  - Stress [Unknown]
  - Pyrexia [Recovered/Resolved]

NARRATIVE: CASE EVENT DATE: 2014
